FAERS Safety Report 12389103 (Version 11)
Quarter: 2021Q1

REPORT INFORMATION
  Report Type: Spontaneous
  Country: ES (occurrence: ES)
  Receive Date: 20160520
  Receipt Date: 20210209
  Transmission Date: 20210419
  Serious: Yes (Death, Hospitalization)
  Sender: FDA-Public Use
  Company Number: ES-BIOGEN-2016BI00236050

PATIENT
  Age: 41 Year
  Sex: Female

DRUGS (1)
  1. TYSABRI [Suspect]
     Active Substance: NATALIZUMAB
     Indication: MULTIPLE SCLEROSIS
     Route: 042
     Dates: start: 20120322, end: 20160428

REACTIONS (2)
  - Progressive multifocal leukoencephalopathy [Fatal]
  - Multiple sclerosis relapse [Unknown]

NARRATIVE: CASE EVENT DATE: 201606
